FAERS Safety Report 11005081 (Version 1)
Quarter: 2015Q2

REPORT INFORMATION
  Report Type: Spontaneous
  Country: US (occurrence: None)
  Receive Date: 20150408
  Receipt Date: 20150408
  Transmission Date: 20150821
  Serious: Yes (Hospitalization)
  Sender: FDA-Public Use
  Company Number: None

PATIENT
  Age: 32 Year
  Sex: Male

DRUGS (1)
  1. ISONIAZID. [Suspect]
     Active Substance: ISONIAZID
     Indication: LATENT TUBERCULOSIS
     Dates: start: 20131118, end: 20140219

REACTIONS (7)
  - Aspartate aminotransferase increased [None]
  - Pruritus [None]
  - Jaundice [None]
  - Palpitations [None]
  - Alanine aminotransferase increased [None]
  - Drug-induced liver injury [None]
  - Blood bilirubin increased [None]

NARRATIVE: CASE EVENT DATE: 20140219
